FAERS Safety Report 5344550-2 (Version None)
Quarter: 2007Q2

REPORT INFORMATION
  Report Type: 
  Country: None (occurrence: None)
  Receive Date: 20070604
  Receipt Date: 20070523
  Transmission Date: 20071010
  Serious: Yes (Other)
  Sender: FDA-Public Use
  Company Number: GB-PFIZER INC-2007042729

PATIENT
  Age: 76 Year
  Sex: Male

DRUGS (3)
  1. LATANOPROST [Suspect]
     Indication: OPEN ANGLE GLAUCOMA
     Route: 061
  2. BIMATOPROST [Suspect]
     Indication: OPEN ANGLE GLAUCOMA
     Route: 061
  3. BRIMONIDINE TARTRATE [Suspect]
     Indication: OPEN ANGLE GLAUCOMA
     Route: 061

REACTIONS (4)
  - ECTROPION [None]
  - ENTROPION [None]
  - EYELID OPERATION [None]
  - TRABECULECTOMY [None]
